FAERS Safety Report 22104952 (Version 1)
Quarter: 2023Q1

REPORT INFORMATION
  Report Type: Report from Study
  Country: US (occurrence: US)
  Receive Date: 20230316
  Receipt Date: 20230316
  Transmission Date: 20230418
  Serious: Yes (Death, Other)
  Sender: FDA-Public Use
  Company Number: US-GILEAD-2023-0620506

PATIENT
  Age: 67 Year
  Sex: Female

DRUGS (4)
  1. SACITUZUMAB GOVITECAN-HZIY [Suspect]
     Active Substance: SACITUZUMAB GOVITECAN-HZIY
     Indication: Triple negative breast cancer
     Dosage: 6 MG/KG ON DAYS 1 AND 8 OF A 21 DAY CYCLE
     Route: 042
     Dates: start: 20210728, end: 20230222
  2. TALAZOPARIB [Suspect]
     Active Substance: TALAZOPARIB
     Indication: Triple negative breast cancer
     Dosage: 0.75 MG
     Route: 048
     Dates: start: 20210728, end: 20230222
  3. NEUPOGEN [Concomitant]
     Active Substance: FILGRASTIM
     Indication: Neutropenia
     Dosage: 300 MCG, TAKEN ON DAYS 20,3,4,5,6 OF 21-DAY CHEMOTHERAPY CYCLE
     Route: 058
     Dates: start: 20230125
  4. LOPERAMIDE HYDROCHLORIDE [Concomitant]
     Active Substance: LOPERAMIDE HYDROCHLORIDE
     Indication: Diarrhoea
     Dosage: 2.5MG-0.025MG
     Route: 048

REACTIONS (3)
  - Multiple organ dysfunction syndrome [Fatal]
  - Hypoxia [Unknown]
  - Hyperglycaemia [Unknown]

NARRATIVE: CASE EVENT DATE: 20230227
